FAERS Safety Report 10737816 (Version 1)
Quarter: 2015Q1

REPORT INFORMATION
  Report Type: Spontaneous
  Country: SE (occurrence: SE)
  Receive Date: 20150126
  Receipt Date: 20150126
  Transmission Date: 20150721
  Serious: Yes (Life-Threatening, Other)
  Sender: FDA-Public Use
  Company Number: SE-TEVA-535950ISR

PATIENT
  Age: 17 Year
  Sex: Male

DRUGS (1)
  1. SERTRALIN TEVA 100 MG FILMDRAGERAD TABLETT [Suspect]
     Active Substance: SERTRALINE HYDROCHLORIDE
     Indication: OBSESSIVE THOUGHTS
     Dosage: 100 MILLIGRAM DAILY;
     Route: 048
     Dates: start: 20141227, end: 20150105

REACTIONS (4)
  - Muscle twitching [Recovered/Resolved]
  - Decreased activity [Recovered/Resolved]
  - Disturbance in attention [Recovered/Resolved]
  - Incoherent [Recovered/Resolved]

NARRATIVE: CASE EVENT DATE: 201412
